FAERS Safety Report 5587477-3 (Version None)
Quarter: 2007Q4

REPORT INFORMATION
  Report Type: 
  Country: None (occurrence: None)
  Receive Date: 20071205
  Receipt Date: 20070820
  Transmission Date: 20080405
  Serious: Yes (Other)
  Sender: FDA-Public Use
  Company Number: HQWYE722621AUG07

PATIENT
  Age: 33 Year
  Sex: Female
  Weight: 61.29 kg

DRUGS (2)
  1. EFFEXOR XR [Suspect]
     Indication: DEPRESSION
     Dosage: ^21 OR 22 (75 MG CAPSULES) AND 21 (37.5  1.1 MG CAPSULES), ORAL
     Route: 048
     Dates: start: 20070819, end: 20070819
  2. ALCOHOL (ETHANOL, ) [Suspect]
     Dosage: 2-3 GLASSES OF RED WINE
     Dates: start: 20070819, end: 20070819

REACTIONS (9)
  - DYSPNOEA [None]
  - HALLUCINATION [None]
  - HEADACHE [None]
  - INSOMNIA [None]
  - INTENTIONAL OVERDOSE [None]
  - MYDRIASIS [None]
  - NAUSEA [None]
  - SUICIDE ATTEMPT [None]
  - TREMOR [None]
